FAERS Safety Report 5739067-7 (Version None)
Quarter: 2008Q2

REPORT INFORMATION
  Report Type: 
  Country: None (occurrence: None)
  Receive Date: 20080515
  Receipt Date: 20080508
  Transmission Date: 20081010
  Serious: Yes (Disabling)
  Sender: FDA-Public Use
  Company Number: JP-ASTRAZENECA-2008AP03606

PATIENT
  Age: 64 Year
  Sex: Male

DRUGS (4)
  1. OMEPRAZOLE [Suspect]
     Indication: HELICOBACTER INFECTION
     Route: 048
     Dates: start: 20071004, end: 20071010
  2. CLARITHROMYCIN [Suspect]
     Indication: HELICOBACTER INFECTION
     Route: 048
     Dates: start: 20071004, end: 20071010
  3. PASETOCIN [Suspect]
     Indication: HELICOBACTER INFECTION
     Route: 048
     Dates: start: 20071004, end: 20071010
  4. MAALOX [Concomitant]
     Indication: DUODENAL ULCER
     Route: 048
     Dates: start: 20071005

REACTIONS (1)
  - COLITIS ULCERATIVE [None]
